FAERS Safety Report 13016907 (Version 2)
Quarter: 2017Q1

REPORT INFORMATION
  Report Type: Report from Study
  Country: JP (occurrence: JP)
  Receive Date: 20161212
  Receipt Date: 20170214
  Transmission Date: 20170428
  Serious: Yes (Other)
  Sender: FDA-Public Use
  Company Number: JP-EISAI MEDICAL RESEARCH-EC-2016-023194

PATIENT
  Age: 60 Year
  Sex: Female
  Weight: 38 kg

DRUGS (13)
  1. MINOPHAGEN C [Concomitant]
  2. GLYCYRON [Concomitant]
     Active Substance: AMMONIUM GLYCYRRHIZATE\GLYCINE\METHIONINE
  3. PYDOXAL [Concomitant]
     Active Substance: PYRIDOXAL
  4. HALAVEN [Suspect]
     Active Substance: ERIBULIN MESYLATE
     Indication: BREAST CANCER
     Route: 041
     Dates: start: 20150820, end: 20150820
  5. VITAMEDIN [Concomitant]
     Active Substance: CYANOCOBALAMIN\PYRIDOXINE HYDROCHLORIDE\THIAMINE
  6. SEROTONE [Concomitant]
     Active Substance: AZASETRON HYDROCHLORIDE
  7. HALAVEN [Suspect]
     Active Substance: ERIBULIN MESYLATE
     Route: 041
     Dates: start: 20150903, end: 20150903
  8. HALAVEN [Suspect]
     Active Substance: ERIBULIN MESYLATE
     Route: 041
     Dates: start: 20150917, end: 20151001
  9. NAUZELIN [Concomitant]
     Active Substance: DOMPERIDONE
  10. TS-1 [Concomitant]
     Active Substance: GIMERACIL\OTERACIL\TEGAFUR
  11. URSO [Concomitant]
     Active Substance: URSODIOL
  12. DEXART [Concomitant]
     Active Substance: DEXAMETHASONE SODIUM PHOSPHATE
  13. MAGNESIUM OXIDE. [Concomitant]
     Active Substance: MAGNESIUM OXIDE

REACTIONS (2)
  - Toxic skin eruption [Recovered/Resolved]
  - Stomatitis [Recovered/Resolved]

NARRATIVE: CASE EVENT DATE: 20150823
